FAERS Safety Report 20861504 (Version 1)
Quarter: 2022Q2

REPORT INFORMATION
  Report Type: Spontaneous
  Country: US (occurrence: US)
  Receive Date: 20220523
  Receipt Date: 20220523
  Transmission Date: 20220721
  Serious: Yes (Other)
  Sender: FDA-Public Use
  Company Number: US-PFIZER INC-202200691504

PATIENT
  Age: 60 Year
  Sex: Female
  Weight: 74.376 kg

DRUGS (1)
  1. METHIMAZOLE [Suspect]
     Active Substance: METHIMAZOLE
     Indication: Thyroid disorder
     Dosage: 5 MG, 1X/DAY

REACTIONS (1)
  - Hyperthyroidism [Unknown]
